FAERS Safety Report 24001368 (Version 1)
Quarter: 2024Q2

REPORT INFORMATION
  Report Type: Spontaneous
  Country: US (occurrence: US)
  Receive Date: 20240621
  Receipt Date: 20240621
  Transmission Date: 20240715
  Serious: Yes (Hospitalization, Other)
  Sender: FDA-Public Use
  Company Number: US-PURDUE-USA-2024-0310282

PATIENT
  Age: 49 Year
  Sex: Male

DRUGS (1)
  1. FENOFIBRATE [Suspect]
     Active Substance: FENOFIBRATE
     Indication: Product used for unknown indication
     Dosage: UNK
     Route: 065

REACTIONS (5)
  - Hepatic failure [Unknown]
  - Acute kidney injury [Unknown]
  - Multiple organ dysfunction syndrome [Unknown]
  - Drug interaction [Unknown]
  - Rhabdomyolysis [Unknown]
